FAERS Safety Report 23584030 (Version 1)
Quarter: 2024Q1

REPORT INFORMATION
  Report Type: Spontaneous
  Country: US (occurrence: US)
  Receive Date: 20240301
  Receipt Date: 20240301
  Transmission Date: 20240410
  Serious: No
  Sender: FDA-Public Use
  Company Number: US-PADAGIS-2024PAD00280

PATIENT

DRUGS (3)
  1. TESTOSTERONE CYPIONATE [Suspect]
     Active Substance: TESTOSTERONE CYPIONATE
     Indication: Blood testosterone decreased
     Dosage: UNK EVERY 2 WEEKS FOR 3 MONTHS
     Route: 065
     Dates: start: 202305, end: 202312
  2. TESTOSTERONE CYPIONATE [Suspect]
     Active Substance: TESTOSTERONE CYPIONATE
     Dosage: EVERY 2 WEEKS FOR 2 MONTHS
     Route: 065
     Dates: start: 202312
  3. VITAMIN B12 [Concomitant]
     Active Substance: CYANOCOBALAMIN
     Indication: Product used for unknown indication
     Dosage: EVERY 3 MONTHS OR TWICE A YEAR
     Route: 065

REACTIONS (5)
  - Blood prolactin decreased [Recovered/Resolved]
  - Blood pressure increased [Unknown]
  - Feeling jittery [Unknown]
  - Injection site pain [Unknown]
  - Drug ineffective [Unknown]

NARRATIVE: CASE EVENT DATE: 20230101
